FAERS Safety Report 6546303-6 (Version None)
Quarter: 2010Q1

REPORT INFORMATION
  Report Type: 
  Country: None (occurrence: None)
  Receive Date: 20100122
  Receipt Date: 20100119
  Transmission Date: 20100710
  Serious: Yes (Hospitalization)
  Sender: FDA-Public Use
  Company Number: US-ROCHE-674674

PATIENT
  Sex: Female
  Weight: 68 kg

DRUGS (4)
  1. CAPECITABINE [Suspect]
     Dosage: 2 TABS IN AM AND 3 TABS IN PM , 2 WKS ON AND 1 WEEK OFF
     Route: 048
     Dates: start: 20090831
  2. CAPECITABINE [Suspect]
     Route: 048
     Dates: start: 20100118
  3. TYKERB [Suspect]
     Indication: DRUG USE FOR UNKNOWN INDICATION
     Route: 065
  4. TYKERB [Suspect]
     Route: 065

REACTIONS (3)
  - DEHYDRATION [None]
  - KIDNEY TRANSPLANT REJECTION [None]
  - RENAL FAILURE [None]
